FAERS Safety Report 4730214-2 (Version None)
Quarter: 2005Q3

REPORT INFORMATION
  Report Type: 
  Country: None (occurrence: None)
  Receive Date: 20050801
  Receipt Date: 20050704
  Transmission Date: 20060218
  Serious: Yes (Hospitalization)
  Sender: FDA-Public Use
  Company Number: 2005CG01225

PATIENT
  Age: 22996 Day
  Sex: Female
  Weight: 59 kg

DRUGS (1)
  1. ZOMIG [Suspect]
     Indication: MIGRAINE
     Route: 048
     Dates: start: 20050320

REACTIONS (2)
  - ANEURYSM RUPTURED [None]
  - MENINGORRHAGIA [None]
